FAERS Safety Report 9690439 (Version 5)
Quarter: 2014Q2

REPORT INFORMATION
  Report Type: Spontaneous
  Country: US (occurrence: US)
  Receive Date: 20131115
  Receipt Date: 20140501
  Transmission Date: 20141212
  Serious: Yes (Hospitalization, Disabling, Other)
  Sender: FDA-Public Use
  Company Number: US-009507513-1205USA00955

PATIENT
  Sex: Female

DRUGS (3)
  1. FOSAMAX [Suspect]
     Indication: OSTEOPOROSIS
     Dosage: 70 MG, QW
     Route: 048
     Dates: end: 2010
  2. ALENDRONATE SODIUM [Suspect]
     Dosage: 70 MG, QW
     Route: 048
  3. GLUCOTROL [Concomitant]
     Indication: TYPE 2 DIABETES MELLITUS
     Dosage: 20MG QAM/10MG QPM

REACTIONS (42)
  - Femur fracture [Not Recovered/Not Resolved]
  - Open reduction of fracture [Unknown]
  - Patella fracture [Unknown]
  - Patellectomy [Unknown]
  - Tendon operation [Unknown]
  - Rib fracture [Unknown]
  - Rib fracture [Unknown]
  - Femur fracture [Unknown]
  - Intramedullary rod insertion [Unknown]
  - Femur fracture [Unknown]
  - Device failure [Unknown]
  - Patella fracture [Unknown]
  - Hypoventilation [Unknown]
  - Somnolence [Unknown]
  - Renal tubular acidosis [Unknown]
  - Renal failure chronic [Not Recovered/Not Resolved]
  - Low turnover osteopathy [Not Recovered/Not Resolved]
  - Stress fracture [Not Recovered/Not Resolved]
  - Anxiety [Unknown]
  - Impaired healing [Unknown]
  - Transfusion [Unknown]
  - Road traffic accident [Unknown]
  - Hypothyroidism [Unknown]
  - Nephrolithiasis [Unknown]
  - Lower respiratory tract infection [Unknown]
  - Hypertension [Unknown]
  - Cardiac murmur [Unknown]
  - Cataract operation [Unknown]
  - Bronchial hyperreactivity [Unknown]
  - Hyperparathyroidism [Unknown]
  - Physical assault [Unknown]
  - Mediastinal disorder [Unknown]
  - Cardiac failure congestive [Unknown]
  - Mental disorder [Unknown]
  - Plantar fasciitis [Unknown]
  - Hypoaesthesia [Unknown]
  - Lower limb fracture [Unknown]
  - Fall [Unknown]
  - Oestrogen deficiency [Unknown]
  - Intervertebral disc disorder [Unknown]
  - Gastrooesophageal reflux disease [Unknown]
  - Gastritis [Unknown]
